FAERS Safety Report 9138101 (Version 1)
Quarter: 2013Q1

REPORT INFORMATION
  Report Type: Spontaneous
  Country: US (occurrence: US)
  Receive Date: 20130304
  Receipt Date: 20130304
  Transmission Date: 20140127
  Serious: Yes (Hospitalization, Other)
  Sender: FDA-Public Use
  Company Number: US-PFIZER INC-2013070754

PATIENT
  Age: 25 Year
  Sex: Male
  Weight: 70.3 kg

DRUGS (1)
  1. BENEFIX [Suspect]
     Indication: FACTOR IX DEFICIENCY
     Dosage: 30 IU/KG, WEEKLY, 3X/WEEK

REACTIONS (4)
  - Disease complication [Unknown]
  - Haemorrhage [Unknown]
  - Joint injury [Unknown]
  - Off label use [Unknown]
